FAERS Safety Report 24201892 (Version 1)
Quarter: 2024Q3

REPORT INFORMATION
  Report Type: Spontaneous
  Country: ES (occurrence: ES)
  Receive Date: 20240812
  Receipt Date: 20240812
  Transmission Date: 20241016
  Serious: Yes (Other)
  Sender: SK LIFE SCIENCE
  Company Number: None

PATIENT

DRUGS (2)
  1. XCOPRI [Suspect]
     Active Substance: CENOBAMATE
     Indication: Partial seizures
     Dosage: ONTOZRY 12,5 MG COMPRIMIDOS + ONTOZRY 25 MG COMPRIMIDOS RECUBIERTOS CON PELICULA, 28 COMPRIMIDOS (25
     Route: 048
     Dates: start: 20240711
  2. XCOPRI [Suspect]
     Active Substance: CENOBAMATE
     Dosage: ONTOZRY 12,5 MG COMPRIMIDOS + ONTOZRY 25 MG COMPRIMIDOS RECUBIERTOS CON PELICULA, 28 COMPRIMIDOS (12
     Route: 048
     Dates: start: 20240711

REACTIONS (1)
  - Skin reaction [Recovered/Resolved]

NARRATIVE: CASE EVENT DATE: 20240711
